FAERS Safety Report 6689384-1 (Version None)
Quarter: 2010Q2

REPORT INFORMATION
  Report Type: 
  Country: None (occurrence: None)
  Receive Date: 20100419
  Receipt Date: 20100419
  Transmission Date: 20101027
  Serious: Yes (Hospitalization)
  Sender: FDA-Public Use
  Company Number: None

PATIENT
  Sex: Male
  Weight: 15.4 kg

DRUGS (3)
  1. CYCLOPHOSPHAMIDE [Suspect]
     Dosage: 1000 MG
  2. ETOPOSIDE [Suspect]
     Dosage: 235 MG
  3. VINCRISTINE SULFATE [Suspect]
     Dosage: 1.8 MG

REACTIONS (3)
  - HYPOTENSION [None]
  - PULSE PRESSURE INCREASED [None]
  - RADIATION PNEUMONITIS [None]
